FAERS Safety Report 9431940 (Version 1)
Quarter: 2013Q3

REPORT INFORMATION
  Report Type: Spontaneous
  Country: BR (occurrence: BR)
  Receive Date: 20130731
  Receipt Date: 20130731
  Transmission Date: 20140515
  Serious: Yes (Other)
  Sender: FDA-Public Use
  Company Number: BR-ROCHE-1254009

PATIENT
  Sex: Female

DRUGS (1)
  1. MABTHERA [Suspect]
     Indication: NON-HODGKIN^S LYMPHOMA
     Route: 065

REACTIONS (7)
  - Pulmonary sepsis [Unknown]
  - Pyrexia [Unknown]
  - Feeling cold [Unknown]
  - Disease recurrence [Unknown]
  - Depression [Unknown]
  - Nausea [Unknown]
  - Laboratory test abnormal [Unknown]
